FAERS Safety Report 9155436 (Version 1)
Quarter: 2013Q1

REPORT INFORMATION
  Report Type: Report from Study
  Country: US (occurrence: US)
  Receive Date: 20130311
  Receipt Date: 20130311
  Transmission Date: 20140127
  Serious: Yes (Death, Hospitalization)
  Sender: FDA-Public Use
  Company Number: US-PURDUE-USA-2013-0099617

PATIENT
  Age: 66 Year
  Sex: Male
  Weight: 83.9 kg

DRUGS (13)
  1. OXYCODONE HCL IMMEDIATE RELEASE (91-490) [Suspect]
     Indication: BACK PAIN
     Dosage: 5 MG, UNK
     Route: 048
     Dates: start: 20130131
  2. MLN8237 [Suspect]
     Indication: LYMPHOMA
     Dosage: 30 MG, BID
     Route: 048
     Dates: start: 20100715, end: 20130204
  3. CIPRO                              /00697201/ [Concomitant]
     Indication: PRODUCT USED FOR UNKNOWN INDICATION
  4. PROVENTIL                          /00139501/ [Suspect]
     Indication: PRODUCT USED FOR UNKNOWN INDICATION
     Dosage: UNK
     Dates: start: 20110512
  5. SYMBICORT [Concomitant]
     Indication: PRODUCT USED FOR UNKNOWN INDICATION
     Dosage: UNK
     Dates: start: 20110504
  6. HYDRODIURIL [Concomitant]
     Indication: PRODUCT USED FOR UNKNOWN INDICATION
  7. PLETAL [Concomitant]
     Indication: PRODUCT USED FOR UNKNOWN INDICATION
  8. PRILOSEC                           /00661201/ [Concomitant]
     Indication: PRODUCT USED FOR UNKNOWN INDICATION
  9. ASPIRIN [Concomitant]
     Indication: PRODUCT USED FOR UNKNOWN INDICATION
  10. ZOVIRAX                            /00587301/ [Concomitant]
     Indication: PRODUCT USED FOR UNKNOWN INDICATION
  11. NEURONTIN [Concomitant]
     Indication: PRODUCT USED FOR UNKNOWN INDICATION
  12. MAGNESIUM [Concomitant]
     Indication: PRODUCT USED FOR UNKNOWN INDICATION
  13. CHOLECALCIFEROL [Concomitant]
     Indication: PRODUCT USED FOR UNKNOWN INDICATION

REACTIONS (5)
  - Encephalopathy [Fatal]
  - Confusional state [Recovering/Resolving]
  - Decreased appetite [Unknown]
  - Intentional drug misuse [Unknown]
  - Dehydration [Unknown]
